FAERS Safety Report 16582983 (Version 1)
Quarter: 2019Q3

REPORT INFORMATION
  Report Type: Spontaneous
  Country: US (occurrence: US)
  Receive Date: 20190716
  Receipt Date: 20190716
  Transmission Date: 20191004
  Serious: No
  Sender: FDA-Public Use
  Company Number: None

PATIENT
  Age: 45 Year
  Sex: Female

DRUGS (1)
  1. UP AND UP MICONAZOLE 3 [Suspect]
     Active Substance: MICONAZOLE NITRATE
     Indication: VULVOVAGINAL MYCOTIC INFECTION
     Dosage: ?          OTHER FREQUENCY:ONCE A DAY FOR THR;??
     Route: 067
     Dates: start: 20190714, end: 20190715

REACTIONS (3)
  - Vulvovaginal burning sensation [None]
  - Vulvovaginal pain [None]
  - Insomnia [None]

NARRATIVE: CASE EVENT DATE: 20190714
